FAERS Safety Report 7533114-8 (Version None)
Quarter: 2011Q2

REPORT INFORMATION
  Report Type: 
  Country: None (occurrence: None)
  Receive Date: 20110608
  Receipt Date: 20110601
  Transmission Date: 20111010
  Serious: No
  Sender: FDA-Public Use
  Company Number: US-US-EMD SERONO, INC.-7027726

PATIENT
  Sex: Female
  Weight: 109 kg

DRUGS (7)
  1. COREG [Concomitant]
     Indication: MYOCARDIAL INFARCTION
  2. REBIF [Suspect]
     Route: 058
     Dates: end: 20110410
  3. QUINAPRIL HCL [Concomitant]
     Indication: HYPERTENSION
  4. COREG [Concomitant]
     Indication: CARDIAC FAILURE CONGESTIVE
  5. LIPITOR [Concomitant]
     Indication: BLOOD CHOLESTEROL INCREASED
  6. REBIF [Suspect]
     Indication: MULTIPLE SCLEROSIS
     Route: 058
     Dates: start: 20101020
  7. FUROSEMIDE [Concomitant]
     Indication: HYPERTENSION

REACTIONS (4)
  - OROPHARYNGEAL PAIN [None]
  - ASTHENIA [None]
  - LIVER FUNCTION TEST ABNORMAL [None]
  - ABDOMINAL PAIN [None]
